FAERS Safety Report 20844706 (Version 1)
Quarter: 2022Q2

REPORT INFORMATION
  Report Type: Spontaneous
  Country: ES (occurrence: ES)
  Receive Date: 20220518
  Receipt Date: 20220518
  Transmission Date: 20220721
  Serious: Yes (Other)
  Sender: FDA-Public Use
  Company Number: None

PATIENT
  Age: 70 Year
  Sex: Male
  Weight: 87 kg

DRUGS (1)
  1. AMLODIPINE BESYLATE\OLMESARTAN MEDOXOMIL [Suspect]
     Active Substance: AMLODIPINE BESYLATE\OLMESARTAN MEDOXOMIL
     Indication: Hypertension
     Dosage: 40 MG/10 MG 28 TABLETS
     Route: 048
     Dates: start: 20211220

REACTIONS (4)
  - Urinary hesitation [Unknown]
  - Erectile dysfunction [Unknown]
  - Dysuria [Unknown]
  - Polyuria [Unknown]

NARRATIVE: CASE EVENT DATE: 20220227
